FAERS Safety Report 26187338 (Version 1)
Quarter: 2025Q4

REPORT INFORMATION
  Report Type: Spontaneous
  Country: US (occurrence: None)
  Receive Date: 20251222
  Receipt Date: 20251222
  Transmission Date: 20260118
  Serious: Yes (Other)
  Sender: FDA-CTU
  Company Number: None

PATIENT
  Age: 50 Year
  Sex: Female
  Weight: 64.35 kg

DRUGS (1)
  1. MAVENCLAD [Suspect]
     Active Substance: CLADRIBINE
     Indication: Multiple sclerosis
     Dosage: 10 MG DAILY ORAL
     Route: 048
     Dates: start: 20241209, end: 20250109

REACTIONS (3)
  - Multiple sclerosis [None]
  - Hand deformity [None]
  - Fall [None]

NARRATIVE: CASE EVENT DATE: 20251219
